FAERS Safety Report 23122886 (Version 1)
Quarter: 2023Q4

REPORT INFORMATION
  Report Type: Spontaneous
  Country: US (occurrence: US)
  Receive Date: 20231030
  Receipt Date: 20231030
  Transmission Date: 20240110
  Serious: No
  Sender: FDA-Public Use
  Company Number: US-GILEAD-2023-0648499

PATIENT
  Age: 50 Year
  Sex: Female
  Weight: 59.9 kg

DRUGS (26)
  1. AMBRISENTAN [Suspect]
     Active Substance: AMBRISENTAN
     Indication: Product used for unknown indication
     Dosage: UNK
     Route: 065
  2. REMODULIN [Suspect]
     Active Substance: TREPROSTINIL
     Indication: Pulmonary arterial hypertension
     Dosage: 0.086 MG/KG
     Route: 042
     Dates: start: 20200702
  3. TADALAFIL [Concomitant]
     Active Substance: TADALAFIL
  4. SYMBICORT [Concomitant]
     Active Substance: BUDESONIDE\FORMOTEROL FUMARATE DIHYDRATE
  5. SODIUM CHLORIDE [Concomitant]
     Active Substance: SODIUM CHLORIDE
  6. POTASSIUM CHLORIDE [Concomitant]
     Active Substance: POTASSIUM CHLORIDE
  7. LASIX [Concomitant]
     Active Substance: FUROSEMIDE
  8. SPIRONOLACTONE [Concomitant]
     Active Substance: SPIRONOLACTONE
  9. GABAPENTIN [Concomitant]
     Active Substance: GABAPENTIN
  10. SINGULAIR [Concomitant]
     Active Substance: MONTELUKAST SODIUM
  11. CLONAZEPAM [Concomitant]
     Active Substance: CLONAZEPAM
  12. OXYGEN [Concomitant]
     Active Substance: OXYGEN
  13. ZINC [Concomitant]
     Active Substance: PYRITHIONE ZINC\ZINC\ZINC CHLORIDE
  14. CALCIUM [Concomitant]
     Active Substance: CALCIUM
  15. PREDNISOLONE [Concomitant]
     Active Substance: PREDNISOLONE
  16. IMODIUM A-D [Concomitant]
     Active Substance: LOPERAMIDE HYDROCHLORIDE
  17. METOPROLOL TARTRATE [Concomitant]
     Active Substance: METOPROLOL TARTRATE
  18. PROAIR HFA [Concomitant]
     Active Substance: ALBUTEROL SULFATE
  19. ELIQUIS [Concomitant]
     Active Substance: APIXABAN
  20. CO Q 10 [UBIDECARENONE] [Concomitant]
  21. AMPICILLIN SODIUM\SULBACTAM SODIUM [Concomitant]
     Active Substance: AMPICILLIN SODIUM\SULBACTAM SODIUM
  22. CHOLECALCIFEROL [Concomitant]
     Active Substance: CHOLECALCIFEROL
  23. MELATONIN [Concomitant]
     Active Substance: MELATONIN
  24. LIPTOR [ATORVASTATIN CALCIUM] [Concomitant]
  25. VITAMIN B12 [Concomitant]
     Active Substance: CYANOCOBALAMIN
  26. VITAMIN C [Concomitant]
     Active Substance: ASCORBIC ACID

REACTIONS (2)
  - Memory impairment [Unknown]
  - Product dose omission issue [Unknown]
